FAERS Safety Report 4629469-4 (Version None)
Quarter: 2005Q2

REPORT INFORMATION
  Report Type: 
  Country: None (occurrence: None)
  Receive Date: 20050405
  Receipt Date: 20050331
  Transmission Date: 20051028
  Serious: Yes (Hospitalization)
  Sender: FDA-Public Use
  Company Number: 200510225BFR

PATIENT
  Age: 79 Year
  Sex: Male

DRUGS (3)
  1. MOXIFLOXACIN HYDROCHLORIDE [Suspect]
     Indication: BRONCHITIS
  2. CORDARONE [Concomitant]
  3. PREVISCAN [Concomitant]

REACTIONS (1)
  - ARRHYTHMIA [None]
